FAERS Safety Report 6120667-X (Version None)
Quarter: 2009Q1

REPORT INFORMATION
  Report Type: 
  Country: None (occurrence: None)
  Receive Date: 20090312
  Receipt Date: 20090312
  Transmission Date: 20090719
  Serious: No
  Sender: FDA-Public Use
  Company Number: None

PATIENT
  Age: 16 Year
  Sex: Female
  Weight: 43.9989 kg

DRUGS (2)
  1. TRI NESSA [Suspect]
     Indication: DYSMENORRHOEA
     Dosage: VARIES THROUGHOUT THE MONTH DAILY PO
     Route: 048
     Dates: start: 20081222, end: 20090309
  2. TRI NESSA [Suspect]
     Indication: MENORRHAGIA
     Dosage: VARIES THROUGHOUT THE MONTH DAILY PO
     Route: 048
     Dates: start: 20081222, end: 20090309

REACTIONS (5)
  - CRYING [None]
  - DEPRESSION [None]
  - EDUCATIONAL PROBLEM [None]
  - FATIGUE [None]
  - MOOD ALTERED [None]
